FAERS Safety Report 10434371 (Version 1)
Quarter: 2014Q3

REPORT INFORMATION
  Report Type: Spontaneous
  Country: FR (occurrence: FR)
  Receive Date: 20140905
  Receipt Date: 20140905
  Transmission Date: 20150326
  Serious: Yes (Hospitalization)
  Sender: FDA-Public Use
  Company Number: FR-TEVA-505306ISR

PATIENT
  Age: 96 Year
  Sex: Female

DRUGS (10)
  1. AMBROXOL [Suspect]
     Active Substance: AMBROXOL
     Dosage: 2 DOSAGE FORMS DAILY;
     Route: 048
     Dates: start: 20100324, end: 20100330
  2. LYSANXIA [Suspect]
     Active Substance: PRAZEPAM
     Indication: DEPRESSION
     Dosage: 10 MILLIGRAM DAILY;
     Route: 048
     Dates: end: 20100330
  3. MYSOLINE [Suspect]
     Active Substance: PRIMIDONE
     Dosage: 250 MILLIGRAM DAILY;
     Route: 048
     Dates: end: 20100330
  4. MONONAXY [Suspect]
     Active Substance: CLARITHROMYCIN
     Indication: BRONCHITIS
     Dosage: 1000 MILLIGRAM DAILY;
     Route: 048
     Dates: start: 20100324, end: 20100330
  5. KARDEGIC [Concomitant]
     Active Substance: ASPIRIN LYSINE
     Dosage: 75 MILLIGRAM DAILY;
     Route: 048
  6. PREDNISOLONE. [Suspect]
     Active Substance: PREDNISOLONE
     Indication: BRONCHITIS
     Dosage: 40 MILLIGRAM DAILY;
     Route: 048
     Dates: start: 20100324, end: 20100330
  7. RHINOFLUIMUCIL [Suspect]
     Active Substance: ACETYLCYSTEINE\BENZALKONIUM CHLORIDE\TUAMINOHEPTANE SULFATE
     Indication: BRONCHITIS
     Dosage: 3 DOSAGE FORMS DAILY;
     Route: 045
     Dates: start: 20100324, end: 20100330
  8. AMLODIPINE [Concomitant]
     Active Substance: AMLODIPINE BESYLATE
     Indication: HYPERTENSION
     Dosage: 5 MILLIGRAM DAILY;
     Route: 048
  9. SERTRALINE [Suspect]
     Active Substance: SERTRALINE HYDROCHLORIDE
     Indication: DEPRESSION
     Dosage: 50 MILLIGRAM DAILY;
     Route: 048
     Dates: end: 20100330
  10. FUROSEMIDE. [Suspect]
     Active Substance: FUROSEMIDE
     Indication: HYPERTENSION
     Dosage: 1 DOSAGE FORMS DAILY;
     Route: 048
     Dates: end: 20100330

REACTIONS (2)
  - Eyelid oedema [Recovered/Resolved]
  - Atrial fibrillation [None]

NARRATIVE: CASE EVENT DATE: 20100330
